FAERS Safety Report 8452057-9 (Version None)
Quarter: 2012Q2

REPORT INFORMATION
  Report Type: 
  Country: None (occurrence: None)
  Receive Date: 20120620
  Receipt Date: 20120613
  Transmission Date: 20120825
  Serious: Yes (Other)
  Sender: FDA-Public Use
  Company Number: US-BRISTOL-MYERS SQUIBB COMPANY-16684417

PATIENT
  Age: 60 Year
  Sex: Male
  Weight: 129 kg

DRUGS (2)
  1. ORENCIA [Suspect]
     Indication: RHEUMATOID ARTHRITIS
     Dosage: RESTARTED ON 4MAY12. RECENT INF 1JUN12
     Route: 042
  2. ARAVA [Suspect]

REACTIONS (9)
  - ARTHRALGIA [None]
  - INFECTION [None]
  - JOINT STIFFNESS [None]
  - TENDON DISORDER [None]
  - NAUSEA [None]
  - HEADACHE [None]
  - ARTHROPATHY [None]
  - MYALGIA [None]
  - INFLUENZA LIKE ILLNESS [None]
